FAERS Safety Report 6240126-3 (Version None)
Quarter: 2009Q2

REPORT INFORMATION
  Report Type: 
  Country: None (occurrence: None)
  Receive Date: 20090618
  Receipt Date: 20090618
  Transmission Date: 20091009
  Serious: No
  Sender: FDA-Public Use
  Company Number: None

PATIENT
  Age: 54 Year
  Sex: Female
  Weight: 77.1115 kg

DRUGS (2)
  1. VYTORIN [Suspect]
     Indication: ARTERIAL OCCLUSIVE DISEASE
     Dates: start: 20041230, end: 20050127
  2. VYTORIN-D [Concomitant]

REACTIONS (5)
  - GAIT DISTURBANCE [None]
  - LIGAMENT DISORDER [None]
  - MUSCLE DISORDER [None]
  - MUSCLE SPASMS [None]
  - PAIN [None]
